FAERS Safety Report 8154063-0 (Version None)
Quarter: 2012Q1

REPORT INFORMATION
  Report Type: 
  Country: None (occurrence: None)
  Receive Date: 20120221
  Receipt Date: 20120209
  Transmission Date: 20120608
  Serious: Yes (Hospitalization)
  Sender: FDA-Public Use
  Company Number: FR-BRISTOL-MYERS SQUIBB COMPANY-16396889

PATIENT
  Age: 84 Year
  Sex: Female

DRUGS (1)
  1. ONGLYZA [Suspect]
     Route: 065

REACTIONS (3)
  - SEPTIC SHOCK [None]
  - DECREASED IMMUNE RESPONSIVENESS [None]
  - CHOLECYSTITIS ACUTE [None]
